FAERS Safety Report 18633797 (Version 1)
Quarter: 2020Q4

REPORT INFORMATION
  Report Type: Spontaneous
  Country: US (occurrence: US)
  Receive Date: 20201217
  Receipt Date: 20201217
  Transmission Date: 20210114
  Serious: Yes (Hospitalization)
  Sender: FDA-Public Use
  Company Number: None

PATIENT
  Age: 9 Year
  Sex: Male

DRUGS (1)
  1. NUTROPIN AQ NUSPIN 10 [Suspect]
     Active Substance: SOMATROPIN
     Indication: NEPHROGENIC DIABETES INSIPIDUS
     Route: 058
     Dates: start: 20190911

REACTIONS (2)
  - Therapy interrupted [None]
  - Constipation [None]

NARRATIVE: CASE EVENT DATE: 20201207
